FAERS Safety Report 5115828-2 (Version None)
Quarter: 2006Q3

REPORT INFORMATION
  Report Type: 
  Country: None (occurrence: None)
  Receive Date: 20060927
  Receipt Date: 20060922
  Transmission Date: 20061208
  Serious: Yes (Hospitalization)
  Sender: FDA-Public Use
  Company Number: TH-MERCK-0609THA00007

PATIENT
  Age: 71 Year
  Sex: Female

DRUGS (1)
  1. HYZAAR [Suspect]
     Route: 048
     Dates: start: 20060101, end: 20060914

REACTIONS (2)
  - DEPRESSED LEVEL OF CONSCIOUSNESS [None]
  - HYPONATRAEMIA [None]
